FAERS Safety Report 6506040-0 (Version None)
Quarter: 2009Q4

REPORT INFORMATION
  Report Type: 
  Country: None (occurrence: None)
  Receive Date: 20091218
  Receipt Date: 20091210
  Transmission Date: 20100525
  Serious: Yes (Life-Threatening, Hospitalization)
  Sender: FDA-Public Use
  Company Number: SE-JNJFOC-20091104782

PATIENT
  Age: 17 Year
  Sex: Male

DRUGS (7)
  1. REMICADE [Suspect]
     Route: 042
     Dates: end: 20091013
  2. REMICADE [Suspect]
     Indication: CROHN'S DISEASE
     Dosage: FOR A FEW YEARS
     Route: 042
     Dates: end: 20091013
  3. PENTASA [Concomitant]
     Route: 048
  4. LANSOPRAZOLE [Concomitant]
     Route: 048
  5. AZATIOPRIN [Concomitant]
  6. VITAMINERAL [Concomitant]
  7. SOLU-CORTEF [Concomitant]
     Indication: PREMEDICATION

REACTIONS (2)
  - ANAPHYLACTIC REACTION [None]
  - INFUSION RELATED REACTION [None]
